FAERS Safety Report 12228820 (Version 2)
Quarter: 2016Q2

REPORT INFORMATION
  Report Type: Spontaneous
  Country: DE (occurrence: DE)
  Receive Date: 20160401
  Receipt Date: 20160502
  Transmission Date: 20160815
  Serious: No
  Sender: FDA-Public Use
  Company Number: PHHY2016DE040170

PATIENT
  Age: 81 Year
  Sex: Male

DRUGS (2)
  1. SANDIMMUN OPTORAL [Suspect]
     Active Substance: CYCLOSPORINE
     Indication: ULCERATIVE KERATITIS
     Dosage: 300 MG, QD
     Route: 065
  2. MYFORTIC [Suspect]
     Active Substance: MYCOPHENOLATE SODIUM
     Indication: ULCERATIVE KERATITIS
     Dosage: 1440 MG, QD
     Route: 065

REACTIONS (1)
  - Product use issue [Unknown]
